FAERS Safety Report 9238166 (Version 2)
Quarter: 2013Q2

REPORT INFORMATION
  Report Type: Spontaneous
  Country: US (occurrence: None)
  Receive Date: 20130415
  Receipt Date: 20130426
  Transmission Date: 20140414
  Serious: Yes (Hospitalization)
  Sender: FDA-Public Use
  Company Number: ACO_35371_2013

PATIENT
  Age: 45 Year
  Sex: Female
  Weight: 61.7 kg

DRUGS (13)
  1. AMPYRA [Suspect]
     Indication: MULTIPLE SCLEROSIS
     Route: 048
  2. AVONEX (INTERFERON BETA-1A) [Concomitant]
  3. PERCOCET [Concomitant]
  4. LYRICA (PREGABALIN) [Concomitant]
  5. PREDNISONE (PREDNISONE) [Concomitant]
  6. DILTIAZEM [Concomitant]
  7. GABAPENTIN (GABAPENTIN) [Concomitant]
  8. METFORMIN HCL (METFORMIN HYDROCHLORIDE) [Concomitant]
  9. LISINOPRIL (LISINOPRIL) [Concomitant]
  10. TIZANIDINE HYDROCHLORIDE (TIZANIDINE HYDROCHLORIDE) [Concomitant]
  11. ALBUTEROL (SALBUTAMOL SULFATE) [Concomitant]
  12. KLONOPIN (CLONAZEPAM) (TABLETS) [Concomitant]
  13. OXYGEN (OXYGEN) [Concomitant]

REACTIONS (3)
  - Pneumonia [None]
  - Bronchitis [None]
  - Arthralgia [None]
